FAERS Safety Report 14941213 (Version 2)
Quarter: 2018Q3

REPORT INFORMATION
  Report Type: Spontaneous
  Country: JP (occurrence: JP)
  Receive Date: 20180525
  Receipt Date: 20180727
  Transmission Date: 20181010
  Serious: Yes (Other)
  Sender: FDA-Public Use
  Company Number: JP-009507513-1805JPN010580

PATIENT
  Age: 66 Year
  Sex: Male

DRUGS (30)
  1. SUREPOST [Concomitant]
     Active Substance: REPAGLINIDE
     Dosage: 0.50 MG, UNK
     Dates: start: 20150519
  2. AVAPRO [Concomitant]
     Active Substance: IRBESARTAN
     Dosage: 100 MG, UNK
     Dates: start: 20140125, end: 20151208
  3. METGLUCO [Concomitant]
     Active Substance: METFORMIN HYDROCHLORIDE
     Dosage: 250 MG, UNK
     Dates: start: 20130525, end: 20131105
  4. HUMALOG MIX [Concomitant]
     Active Substance: INSULIN LISPRO
     Dosage: 10 IU, UNK
     Dates: start: 20120410, end: 20120601
  5. HUMALOG MIX [Concomitant]
     Active Substance: INSULIN LISPRO
     Dosage: 8 IU, UNK
     Dates: start: 20120602, end: 20120706
  6. METGLUCO [Concomitant]
     Active Substance: METFORMIN HYDROCHLORIDE
     Dosage: 500 MG, UNK
     Dates: start: 20151219, end: 20160909
  7. FASTIC [Concomitant]
     Active Substance: NATEGLINIDE
     Dosage: UNK
     Dates: start: 20171027, end: 20171222
  8. HUMALOG [Concomitant]
     Active Substance: INSULIN LISPRO
     Dosage: 20 IU, UNK
     Dates: end: 20120410
  9. HUMALOG [Concomitant]
     Active Substance: INSULIN LISPRO
     Dosage: 8 IU, UNK
     Dates: start: 20120811, end: 20120907
  10. HUMALOG MIX [Concomitant]
     Active Substance: INSULIN LISPRO
     Dosage: 4 IU, UNK
     Dates: start: 20120811, end: 20120907
  11. SUREPOST [Concomitant]
     Active Substance: REPAGLINIDE
     Dosage: 0.25 MG, UNK
     Route: 065
     Dates: start: 20171223, end: 20180518
  12. AVAPRO [Concomitant]
     Active Substance: IRBESARTAN
     Dosage: 50 MG, UNK
     Dates: start: 20120602, end: 20140124
  13. FASTIC [Concomitant]
     Active Substance: NATEGLINIDE
     Dosage: UNK
     Dates: start: 20160507, end: 20160708
  14. HUMALOG [Concomitant]
     Active Substance: INSULIN LISPRO
     Dosage: 4 IU, UNK
     Dates: start: 20121006, end: 20121109
  15. GLACTIV [Suspect]
     Active Substance: SITAGLIPTIN
     Indication: TYPE 2 DIABETES MELLITUS
     Dosage: DAILY DOSE: 100 MG
     Route: 048
     Dates: start: 20160227, end: 20180511
  16. GLACTIV [Suspect]
     Active Substance: SITAGLIPTIN
     Dosage: 50 MG, QD
     Route: 048
     Dates: start: 20120811, end: 20160226
  17. CARDENALIN [Concomitant]
     Active Substance: DOXAZOSIN MESYLATE
     Dosage: UNK
     Dates: start: 20141013, end: 20160708
  18. HUMALOG [Concomitant]
     Active Substance: INSULIN LISPRO
     Dosage: 10 IU, UNK
     Dates: start: 20120602, end: 20120810
  19. HUMALOG MIX [Concomitant]
     Active Substance: INSULIN LISPRO
     Dosage: 15 IU, UNK
     Dates: end: 20120409
  20. METGLUCO [Concomitant]
     Active Substance: METFORMIN HYDROCHLORIDE
     Dosage: 500 MG, UNK
     Dates: start: 20131116, end: 20140530
  21. HUMALOG [Concomitant]
     Active Substance: INSULIN LISPRO
     Dosage: 6 IU, UNK
     Dates: start: 20120908, end: 20121005
  22. GLACTIV [Suspect]
     Active Substance: SITAGLIPTIN
     Dosage: 25 MG, QD
     Dates: start: 20120509, end: 20120810
  23. AVAPRO [Concomitant]
     Active Substance: IRBESARTAN
     Dosage: 100 MG, UNK
     Dates: start: 20120327, end: 20120601
  24. SEIBULE [Concomitant]
     Active Substance: MIGLITOL
     Dosage: UNK
     Dates: start: 20130921, end: 20180302
  25. METGLUCO [Concomitant]
     Active Substance: METFORMIN HYDROCHLORIDE
     Dosage: 750 MG, UNK
     Dates: start: 20140531, end: 20151218
  26. METGLUCO [Concomitant]
     Active Substance: METFORMIN HYDROCHLORIDE
     Dosage: 500 MG, UNK
     Dates: start: 20151219
  27. HUMALOG [Concomitant]
     Active Substance: INSULIN LISPRO
     Dosage: 16 IU, UNK
     Dates: start: 20120411, end: 20120601
  28. HUMALOG MIX [Concomitant]
     Active Substance: INSULIN LISPRO
     Dosage: 6 IU, UNK
     Dates: start: 20120707, end: 20120810
  29. HUMALOG MIX [Concomitant]
     Active Substance: INSULIN LISPRO
     Dosage: 2 IU, UNK
     Dates: start: 20120908, end: 20121109
  30. AVAPRO [Concomitant]
     Active Substance: IRBESARTAN
     Dosage: 200 MG, UNK
     Dates: start: 20151209

REACTIONS (1)
  - Rheumatoid arthritis [Recovering/Resolving]

NARRATIVE: CASE EVENT DATE: 201804
